FAERS Safety Report 15051490 (Version 1)
Quarter: 2018Q2

REPORT INFORMATION
  Report Type: Spontaneous
  Country: US (occurrence: US)
  Receive Date: 20180622
  Receipt Date: 20180622
  Transmission Date: 20180711
  Serious: Yes (Other)
  Sender: FDA-Public Use
  Company Number: US-TEVA-2018-US-911662

PATIENT
  Sex: Female

DRUGS (1)
  1. ESTRADIOL. [Suspect]
     Active Substance: ESTRADIOL

REACTIONS (4)
  - Haemorrhage [Unknown]
  - Limb injury [Unknown]
  - Product blister packaging issue [Unknown]
  - Product packaging issue [Unknown]
